FAERS Safety Report 8871844 (Version 1)
Quarter: 2012Q4

REPORT INFORMATION
  Report Type: Spontaneous
  Country: US (occurrence: None)
  Receive Date: 20121026
  Receipt Date: 20121026
  Transmission Date: 20130627
  Serious: Yes (Hospitalization)
  Sender: FDA-Public Use
  Company Number: None

PATIENT
  Sex: Male
  Weight: 87.5 kg

DRUGS (3)
  1. PEG-L ASPARAGINASE [Suspect]
  2. METHOTREXATE [Suspect]
  3. VINCRISTINE SULFATE [Suspect]

REACTIONS (1)
  - Pancreatitis [None]
